FAERS Safety Report 5235639-7 (Version None)
Quarter: 2007Q1

REPORT INFORMATION
  Report Type: 
  Country: None (occurrence: None)
  Receive Date: 20070212
  Receipt Date: 20070209
  Transmission Date: 20070707
  Serious: Yes (Hospitalization)
  Sender: FDA-Public Use
  Company Number: CA-GLAXOSMITHKLINE-A0624466A

PATIENT
  Age: 55 Year
  Sex: Female
  Weight: 63.6 kg

DRUGS (1)
  1. MALARONE [Suspect]
     Dosage: 1TAB PER DAY
     Route: 048
     Dates: start: 20051202, end: 20060112

REACTIONS (5)
  - ASTHENIA [None]
  - HEPATIC ENZYME INCREASED [None]
  - HEPATITIS [None]
  - NAUSEA [None]
  - PYREXIA [None]
